FAERS Safety Report 9227559 (Version 1)
Quarter: 2013Q2

REPORT INFORMATION
  Report Type: Spontaneous
  Country: JP (occurrence: JP)
  Receive Date: 20130412
  Receipt Date: 20130412
  Transmission Date: 20140414
  Serious: Yes (Hospitalization)
  Sender: FDA-Public Use
  Company Number: JP-ASTELLAS-2012JP005696

PATIENT
  Age: 27 Year
  Sex: Male

DRUGS (6)
  1. PROGRAF [Suspect]
     Indication: COLITIS ULCERATIVE
     Dosage: 8 MG, UNKNOWN/D
     Route: 048
     Dates: start: 20120413, end: 20120618
  2. MINOMYCIN [Suspect]
     Indication: ACNE
     Dosage: UNK
     Route: 048
     Dates: start: 20120612, end: 20120618
  3. BAKTAR [Concomitant]
     Dosage: UNK
     Route: 048
     Dates: end: 20120618
  4. PARIET [Concomitant]
     Dosage: UNK
     Route: 048
     Dates: end: 20120618
  5. PREDONINE                          /00016201/ [Concomitant]
     Dosage: 15 MG, UNKNOWN/D
     Route: 048
  6. MIYA BM [Concomitant]
     Dosage: UNK
     Route: 048
     Dates: end: 20120618

REACTIONS (1)
  - Acute generalised exanthematous pustulosis [Recovered/Resolved]
